FAERS Safety Report 24256082 (Version 9)
Quarter: 2025Q1

REPORT INFORMATION
  Report Type: Report from Study
  Country: CA (occurrence: CA)
  Receive Date: 20240827
  Receipt Date: 20250320
  Transmission Date: 20250409
  Serious: Yes (Other)
  Sender: JOHNSON AND JOHNSON
  Company Number: CA-JNJFOC-20240680251

PATIENT
  Age: 26 Year
  Sex: Female
  Weight: 91 kg

DRUGS (9)
  1. REMICADE [Suspect]
     Active Substance: INFLIXIMAB
     Indication: Juvenile idiopathic arthritis
     Dosage: 5 (MG/KG MILLIGRAM(S)/KILOGRAM )
     Route: 041
     Dates: start: 20221206
  2. REMICADE [Suspect]
     Active Substance: INFLIXIMAB
     Indication: Uveitis
     Route: 041
     Dates: start: 20221212
  3. REMICADE [Suspect]
     Active Substance: INFLIXIMAB
     Route: 041
     Dates: start: 20221206
  4. REMICADE [Suspect]
     Active Substance: INFLIXIMAB
     Route: 041
  5. REMICADE [Suspect]
     Active Substance: INFLIXIMAB
     Route: 041
  6. REMICADE [Suspect]
     Active Substance: INFLIXIMAB
     Route: 041
  7. REMICADE [Suspect]
     Active Substance: INFLIXIMAB
     Route: 041
  8. REMICADE [Suspect]
     Active Substance: INFLIXIMAB
     Route: 041
  9. REMICADE [Suspect]
     Active Substance: INFLIXIMAB
     Route: 041

REACTIONS (13)
  - Rheumatoid arthritis [Not Recovered/Not Resolved]
  - Road traffic accident [Unknown]
  - Ligament sprain [Recovering/Resolving]
  - Ligament sprain [Recovering/Resolving]
  - Craniocerebral injury [Recovering/Resolving]
  - Uveitis [Not Recovered/Not Resolved]
  - Lymphadenitis [Recovered/Resolved]
  - Herpes zoster [Recovering/Resolving]
  - Pain [Not Recovered/Not Resolved]
  - Acarodermatitis [Recovering/Resolving]
  - Influenza like illness [Recovering/Resolving]
  - Fatigue [Recovered/Resolved]
  - Weight increased [Unknown]

NARRATIVE: CASE EVENT DATE: 20240610
